FAERS Safety Report 18023714 (Version 1)
Quarter: 2020Q3

REPORT INFORMATION
  Report Type: Spontaneous
  Country: NO (occurrence: NO)
  Receive Date: 20200715
  Receipt Date: 20200715
  Transmission Date: 20201103
  Serious: No
  Sender: FDA-Public Use
  Company Number: NO-LUPIN PHARMACEUTICALS INC.-2019-05041

PATIENT
  Age: 3 Decade
  Sex: Male

DRUGS (1)
  1. LEVETIRACETAM. [Suspect]
     Active Substance: LEVETIRACETAM
     Indication: JUVENILE MYOCLONIC EPILEPSY
     Dosage: UNK
     Route: 065

REACTIONS (1)
  - Irritability [Recovering/Resolving]
